FAERS Safety Report 5573822-1 (Version None)
Quarter: 2007Q4

REPORT INFORMATION
  Report Type: 
  Country: None (occurrence: None)
  Receive Date: 20071226
  Receipt Date: 20071214
  Transmission Date: 20080405
  Serious: Yes (Other)
  Sender: FDA-Public Use
  Company Number: US-PFIZER INC-2007077277

PATIENT
  Sex: Female
  Weight: 61.7 kg

DRUGS (7)
  1. DILANTIN [Suspect]
     Indication: STATUS EPILEPTICUS
     Dosage: DAILY DOSE:300MG
     Route: 048
     Dates: start: 20050308, end: 20050403
  2. DEPAKOTE [Concomitant]
  3. TOPAMAX [Concomitant]
     Indication: CONVULSION
     Dosage: DAILY DOSE:50MG
     Route: 048
  4. CEREBYX [Concomitant]
     Indication: CONVULSION
     Route: 042
     Dates: start: 20050303, end: 20050301
  5. DEPAKOTE [Concomitant]
     Indication: HEADACHE
     Route: 048
     Dates: start: 20050201, end: 20050403
  6. ORTHO TRI-CYCLEN [Concomitant]
     Indication: ACNE
  7. MINOCYCLINE HCL [Concomitant]
     Indication: ACNE

REACTIONS (7)
  - COGNITIVE DISORDER [None]
  - IMMUNE SYSTEM DISORDER [None]
  - LUNG DISORDER [None]
  - MENTAL DISORDER [None]
  - RESPIRATORY FAILURE [None]
  - SCAR [None]
  - STEVENS-JOHNSON SYNDROME [None]
